FAERS Safety Report 7331909-7 (Version None)
Quarter: 2011Q1

REPORT INFORMATION
  Report Type: 
  Country: None (occurrence: None)
  Receive Date: 20110304
  Receipt Date: 20091130
  Transmission Date: 20110831
  Serious: No
  Sender: FDA-Public Use
  Company Number: US-PFIZER INC-2009279550

PATIENT
  Sex: Female

DRUGS (2)
  1. PREDNISONE [Concomitant]
     Dosage: 5 MG, UNK
     Route: 048
  2. DILANTIN [Suspect]
     Indication: EPILEPSY
     Dosage: 30 MG, 3X/DAY
     Route: 048

REACTIONS (2)
  - FEELING DRUNK [None]
  - IMPAIRED DRIVING ABILITY [None]
